FAERS Safety Report 25243432 (Version 5)
Quarter: 2025Q2

REPORT INFORMATION
  Report Type: Spontaneous
  Country: MX (occurrence: MX)
  Receive Date: 20250428
  Receipt Date: 20250609
  Transmission Date: 20250716
  Serious: Yes (Other)
  Sender: SANDOZ
  Company Number: MX-002147023-NVSC2024MX221315

PATIENT
  Age: 60 Year
  Sex: Female
  Weight: 62.3 kg

DRUGS (5)
  1. ANASTROZOLE [Suspect]
     Active Substance: ANASTROZOLE
     Indication: Breast cancer
     Dosage: 1 MG, QD (TABLET)
     Route: 048
     Dates: start: 202406
  2. KISQALI [Suspect]
     Active Substance: RIBOCICLIB SUCCINATE
     Indication: Bone cancer
     Dosage: 3 DOSAGE FORM, (200 MG) QD
     Route: 048
     Dates: start: 202406
  3. KISQALI [Suspect]
     Active Substance: RIBOCICLIB SUCCINATE
     Dosage: 3 DOSAGE FORM, (200 MG) QD
     Route: 048
  4. KISQALI [Suspect]
     Active Substance: RIBOCICLIB SUCCINATE
     Indication: Breast cancer
     Dosage: 3 DOSAGE FORM, (200 MG) QD
     Route: 048
  5. DENOSUMAB [Concomitant]
     Active Substance: DENOSUMAB
     Indication: Breast cancer
     Route: 042
     Dates: start: 202406

REACTIONS (24)
  - Colitis [Unknown]
  - Pulmonary mass [Unknown]
  - Productive cough [Not Recovered/Not Resolved]
  - Musculoskeletal pain [Recovered/Resolved]
  - Oropharyngeal pain [Not Recovered/Not Resolved]
  - Dry skin [Not Recovered/Not Resolved]
  - Skin burning sensation [Recovering/Resolving]
  - Urinary tract pain [Recovered/Resolved]
  - Urinary tract infection [Recovered/Resolved]
  - Urinary tract infection [Unknown]
  - Pelvic pain [Recovered/Resolved]
  - Cystitis [Recovered/Resolved]
  - Cough [Not Recovered/Not Resolved]
  - Bone pain [Recovered/Resolved]
  - Spinal pain [Recovered/Resolved]
  - Burning sensation [Unknown]
  - Diarrhoea [Recovering/Resolving]
  - Nausea [Recovered/Resolved]
  - Vomiting [Recovered/Resolved]
  - Decreased appetite [Recovered/Resolved]
  - Pruritus [Recovering/Resolving]
  - Vomiting [Recovered/Resolved]
  - Nausea [Recovered/Resolved]
  - Off label use [Unknown]

NARRATIVE: CASE EVENT DATE: 20240601
